FAERS Safety Report 5320980-X (Version None)
Quarter: 2007Q2

REPORT INFORMATION
  Report Type: 
  Country: None (occurrence: None)
  Receive Date: 20070510
  Receipt Date: 20070502
  Transmission Date: 20071010
  Serious: Yes (Other)
  Sender: FDA-Public Use
  Company Number: PHEH2007US06255

PATIENT
  Age: 74 Year
  Sex: Female

DRUGS (4)
  1. INDERAL [Concomitant]
     Indication: HEART RATE INCREASED
     Dosage: 120 MG, QD
  2. ZELNORM [Suspect]
     Indication: IMPAIRED GASTRIC EMPTYING
     Dosage: 6 MG, QD
     Route: 048
     Dates: start: 20050101, end: 20070301
  3. HYZAAR [Concomitant]
  4. VITAMIN E [Concomitant]

REACTIONS (2)
  - CARDIAC PACEMAKER INSERTION [None]
  - HEART RATE IRREGULAR [None]
